FAERS Safety Report 8476859-8 (Version None)
Quarter: 2012Q2

REPORT INFORMATION
  Report Type: 
  Country: None (occurrence: None)
  Receive Date: 20120629
  Receipt Date: 20120618
  Transmission Date: 20120825
  Serious: Yes (Hospitalization)
  Sender: FDA-Public Use
  Company Number: US-BIOGENIDEC-2012BI021715

PATIENT
  Age: 52 Year
  Sex: Female

DRUGS (1)
  1. TYSABRI [Suspect]
     Indication: MULTIPLE SCLEROSIS
     Route: 042
     Dates: start: 20100121, end: 20120201

REACTIONS (9)
  - INSOMNIA [None]
  - ABDOMINAL PAIN UPPER [None]
  - WEIGHT DECREASED [None]
  - ABDOMINAL PAIN [None]
  - HEPATIC FAILURE [None]
  - GASTRITIS [None]
  - DECREASED APPETITE [None]
  - FATIGUE [None]
  - DEPRESSED MOOD [None]
